FAERS Safety Report 7639880-5 (Version None)
Quarter: 2011Q3

REPORT INFORMATION
  Report Type: 
  Country: None (occurrence: None)
  Receive Date: 20110727
  Receipt Date: 20110718
  Transmission Date: 20111222
  Serious: Yes (Hospitalization)
  Sender: FDA-Public Use
  Company Number: US-BAXTER-2011BH023259

PATIENT
  Sex: Female

DRUGS (1)
  1. DIANEAL [Suspect]
     Indication: PERITONEAL DIALYSIS
     Route: 033
     Dates: start: 20100730

REACTIONS (4)
  - PHARYNGITIS STREPTOCOCCAL [None]
  - FRACTURED COCCYX [None]
  - SPINAL FRACTURE [None]
  - INFLAMMATORY BOWEL DISEASE [None]
